FAERS Safety Report 10683970 (Version 7)
Quarter: 2016Q1

REPORT INFORMATION
  Report Type: Report from Study
  Country: BR (occurrence: BR)
  Receive Date: 20141230
  Receipt Date: 20160318
  Transmission Date: 20160525
  Serious: Yes (Other)
  Sender: FDA-Public Use
  Company Number: PHHY2014BR156821

PATIENT
  Age: 43 Year
  Sex: Female
  Weight: 84 kg

DRUGS (17)
  1. XOLAIR [Suspect]
     Active Substance: OMALIZUMAB
     Dosage: 1 DF, QMO
     Route: 058
     Dates: start: 20070806
  2. BENICAR [Suspect]
     Active Substance: OLMESARTAN MEDOXOMIL
     Indication: HYPERTENSION
     Dosage: 1 DF, QD
     Route: 048
     Dates: start: 2007
  3. TILATIL [Suspect]
     Active Substance: TENOXICAM
     Indication: DRUG TOXICITY PROPHYLAXIS
     Route: 048
     Dates: start: 201411
  4. NOVALGIN [Suspect]
     Active Substance: METAMIZOLE SODIUM
     Indication: PAIN
     Dosage: 80 DRP, QD
     Route: 048
     Dates: start: 201411
  5. RANITIDINE [Suspect]
     Active Substance: RANITIDINE\RANITIDINE HYDROCHLORIDE
     Indication: PRODUCT USED FOR UNKNOWN INDICATION
     Dosage: 2 DF, QD
     Route: 048
     Dates: start: 2007
  6. BUSONID [Concomitant]
     Active Substance: BUDESONIDE
     Indication: ASTHMA
     Dosage: UNK UNK, BID
     Route: 045
     Dates: start: 2001
  7. OMEPRAZOLE. [Concomitant]
     Active Substance: OMEPRAZOLE
     Indication: PRODUCT USED FOR UNKNOWN INDICATION
     Route: 048
  8. PARACETAMOL [Concomitant]
     Active Substance: ACETAMINOPHEN
     Indication: PAIN
     Dosage: 3 DF, QD / SPORADIC USE
     Route: 065
     Dates: start: 201308
  9. ALENIA [Concomitant]
     Active Substance: BUDESONIDE\FORMOTEROL FUMARATE
     Indication: ASTHMA
     Dosage: UNK UNK, BID
     Route: 048
     Dates: start: 2001
  10. MINERAL OIL. [Concomitant]
     Active Substance: MINERAL OIL
     Indication: GASTROINTESTINAL DISORDER
     Dosage: 48 ML, QD
     Route: 048
     Dates: start: 201308
  11. XOLAIR [Suspect]
     Active Substance: OMALIZUMAB
     Indication: ASTHMA
     Dosage: 1 DF, QMO
     Route: 058
     Dates: start: 2007
  12. BUSONID [Concomitant]
     Active Substance: BUDESONIDE
     Dosage: UNK UNK, BID
     Route: 048
     Dates: start: 2001
  13. ACETAMINOPHEN. [Concomitant]
     Active Substance: ACETAMINOPHEN
     Indication: PRODUCT USED FOR UNKNOWN INDICATION
     Route: 048
  14. DICLOFENAC [Suspect]
     Active Substance: DICLOFENAC
     Indication: DRUG TOXICITY PROPHYLAXIS
     Dosage: 3 DF, QD (TABLETS)
     Route: 048
     Dates: start: 201411
  15. LANSOPRAZOLE. [Concomitant]
     Active Substance: LANSOPRAZOLE
     Indication: GASTROINTESTINAL DISORDER
     Dosage: 4 DF, BID
     Route: 065
     Dates: start: 2001
  16. LOSARTAN. [Concomitant]
     Active Substance: LOSARTAN
     Indication: HYPERTENSION
     Dosage: UNK UNK, BID
     Route: 065
     Dates: start: 2013
  17. AEROLIN [Suspect]
     Active Substance: ALBUTEROL
     Indication: ASTHMATIC CRISIS
     Dosage: 2 DF, QD (2 JETS), WHEN IT WAS NECESSARY
     Route: 048
     Dates: start: 2007

REACTIONS (7)
  - Dizziness [Recovering/Resolving]
  - Breast mass [Unknown]
  - Sedation [Recovered/Resolved]
  - Breast cancer [Unknown]
  - Body height decreased [Recovering/Resolving]
  - Speech disorder [Unknown]
  - Spinal deformity [Recovering/Resolving]

NARRATIVE: CASE EVENT DATE: 201312
